FAERS Safety Report 11174902 (Version 1)
Quarter: 2015Q2

REPORT INFORMATION
  Report Type: Spontaneous
  Country: US (occurrence: None)
  Receive Date: 20150608
  Receipt Date: 20150608
  Transmission Date: 20150821
  Serious: Yes (Other)
  Sender: FDA-Public Use
  Company Number: None

PATIENT
  Age: 55 Year
  Sex: Male

DRUGS (1)
  1. TESTOSTERONE CYPIONATE. [Suspect]
     Active Substance: TESTOSTERONE CYPIONATE
     Route: 030
     Dates: start: 20150605, end: 20150605

REACTIONS (2)
  - Product packaging quantity issue [None]
  - Product label issue [None]

NARRATIVE: CASE EVENT DATE: 20150605
